FAERS Safety Report 10283252 (Version 1)
Quarter: 2014Q3

REPORT INFORMATION
  Report Type: Spontaneous
  Country: SE (occurrence: SE)
  Receive Date: 20140708
  Receipt Date: 20140708
  Transmission Date: 20150326
  Serious: Yes (Other)
  Sender: FDA-Public Use
  Company Number: SE-009507513-1407SWE002802

PATIENT
  Age: 75 Year
  Sex: Female

DRUGS (12)
  1. NOVOMIX [Concomitant]
     Active Substance: INSULIN ASPART
  2. PREDNISOLONE. [Concomitant]
     Active Substance: PREDNISOLONE
  3. OMEPRAZOLE. [Concomitant]
     Active Substance: OMEPRAZOLE
  4. METFORMIN [Concomitant]
     Active Substance: METFORMIN HYDROCHLORIDE
  5. NORMORIX [Concomitant]
     Dosage: 5MG/50MG, SOLUTION FOR INJECTION, SUSPENSION, CYLINDER AMPOULE
  6. SPIRIVA [Concomitant]
     Active Substance: TIOTROPIUM BROMIDE MONOHYDRATE
     Dosage: INHALATION POWDER, HARD CAPSULE
  7. SERETIDE [Concomitant]
     Active Substance: FLUTICASONE FUROATE\SALMETEROL XINAFOATE
     Dosage: INHALATION POWDER, PRE-DISPENSED
  8. JANUVIA [Suspect]
     Active Substance: SITAGLIPTIN PHOSPHATE
     Indication: TYPE 2 DIABETES MELLITUS
     Route: 048
     Dates: start: 20131024, end: 20140225
  9. METHOTREXATE [Concomitant]
     Active Substance: METHOTREXATE
  10. VAGIFEM [Concomitant]
     Active Substance: ESTRADIOL
     Dosage: VAGINAL TABLET
  11. AMARYL [Concomitant]
     Active Substance: GLIMEPIRIDE
  12. FOLACIN [Concomitant]
     Active Substance: FOLIC ACID

REACTIONS (3)
  - Pruritus [Not Recovered/Not Resolved]
  - Burning sensation [Not Recovered/Not Resolved]
  - Rash erythematous [Not Recovered/Not Resolved]

NARRATIVE: CASE EVENT DATE: 20140215
